FAERS Safety Report 5128397-8 (Version None)
Quarter: 2006Q4

REPORT INFORMATION
  Report Type: 
  Country: None (occurrence: None)
  Receive Date: 20061011
  Receipt Date: 20060920
  Transmission Date: 20070319
  Serious: Yes (Hospitalization)
  Sender: FDA-Public Use
  Company Number: US200609005163

PATIENT
  Sex: Female

DRUGS (3)
  1. FORTEO [Suspect]
     Indication: OSTEOPOROSIS
     Dates: start: 20050101, end: 20050101
  2. FORTEO [Suspect]
     Indication: OSTEOPOROSIS
     Dates: start: 20060101
  3. FORTEO [Concomitant]

REACTIONS (2)
  - ECONOMIC PROBLEM [None]
  - HIP FRACTURE [None]
